FAERS Safety Report 6563082-7 (Version None)
Quarter: 2010Q1

REPORT INFORMATION
  Report Type: 
  Country: None (occurrence: None)
  Receive Date: 20100130
  Receipt Date: 20091203
  Transmission Date: 20100710
  Serious: No
  Sender: FDA-Public Use
  Company Number: US-ABBOTT-09P-163-0612769-00

PATIENT
  Sex: Male
  Weight: 106.69 kg

DRUGS (11)
  1. HUMIRA [Suspect]
     Indication: PSORIASIS
     Dates: start: 20091118, end: 20091118
  2. HUMIRA [Suspect]
     Dates: start: 20091125
  3. METHOTREXATE [Concomitant]
     Indication: PSORIASIS
  4. METOPROLOL [Concomitant]
     Indication: IGA NEPHROPATHY
  5. ACCUPRIL [Concomitant]
     Indication: MALIGNANT HYPERTENSION
  6. KLOR-CON [Concomitant]
     Indication: HYPOKALAEMIA
  7. LOVASTATIN [Concomitant]
     Indication: BLOOD CHOLESTEROL INCREASED
  8. TRIAMCINALONE CREAM [Concomitant]
     Indication: PSORIASIS
  9. SALMON OIL [Concomitant]
     Indication: ROUTINE HEALTH MAINTENANCE
  10. ASPIRIN [Concomitant]
     Indication: ROUTINE HEALTH MAINTENANCE
  11. TUMS [Concomitant]
     Indication: DYSPEPSIA

REACTIONS (1)
  - INJECTION SITE PAIN [None]
